FAERS Safety Report 18209089 (Version 1)
Quarter: 2020Q3

REPORT INFORMATION
  Report Type: Spontaneous
  Country: US (occurrence: US)
  Receive Date: 20200828
  Receipt Date: 20200828
  Transmission Date: 20201103
  Serious: Yes (Hospitalization, Other)
  Sender: FDA-Public Use
  Company Number: US-TARO-2020TAR01374

PATIENT
  Age: 20 Year
  Sex: Male

DRUGS (1)
  1. LEVETIRACETAM. [Suspect]
     Active Substance: LEVETIRACETAM
     Indication: EPILEPSY
     Dosage: 500 MG, BID

REACTIONS (4)
  - Postictal psychosis [Recovered/Resolved]
  - Depression [Recovered/Resolved]
  - Suicide attempt [Unknown]
  - Drug withdrawal convulsions [Unknown]
